FAERS Safety Report 22781764 (Version 5)
Quarter: 2024Q1

REPORT INFORMATION
  Report Type: Report from Study
  Country: JP (occurrence: None)
  Receive Date: 20230803
  Receipt Date: 20240222
  Transmission Date: 20240409
  Serious: Yes (Life-Threatening, Hospitalization, Other)
  Sender: FDA-Public Use
  Company Number: 2023A161858

PATIENT
  Age: 66 Year
  Sex: Male

DRUGS (4)
  1. IMFINZI [Suspect]
     Active Substance: DURVALUMAB
     Indication: Non-small cell lung cancer
     Route: 041
     Dates: start: 20230524, end: 20230705
  2. IMJUDO [Suspect]
     Active Substance: TREMELIMUMAB\TREMELIMUMAB-ACTL
     Indication: Non-small cell lung cancer
     Route: 041
     Dates: start: 20230524, end: 20230705
  3. PREDONINE [Concomitant]
     Active Substance: PREDNISOLONE
  4. PEMETREXED [Concomitant]
     Active Substance: PEMETREXED
     Indication: Non-small cell lung cancer

REACTIONS (4)
  - Cytokine release syndrome [Recovering/Resolving]
  - Haemophagocytic lymphohistiocytosis [Recovered/Resolved]
  - Lymphocyte count increased [Recovered/Resolved]
  - Rash [Recovered/Resolved]

NARRATIVE: CASE EVENT DATE: 20230706
